FAERS Safety Report 17440802 (Version 2)
Quarter: 2020Q2

REPORT INFORMATION
  Report Type: Spontaneous
  Country: NZ (occurrence: NZ)
  Receive Date: 20200220
  Receipt Date: 20200407
  Transmission Date: 20200713
  Serious: Yes (Hospitalization)
  Sender: FDA-Public Use
  Company Number: NZ-PFIZER INC-2020072032

PATIENT
  Sex: Male

DRUGS (2)
  1. DILANTIN [Suspect]
     Active Substance: PHENYTOIN
     Indication: EPILEPSY
     Dosage: 400 MG, DAILY
  2. DILANTIN [Suspect]
     Active Substance: PHENYTOIN
     Dosage: 330 MG, DAILY
     Route: 048
     Dates: start: 20191217

REACTIONS (5)
  - Dizziness [Recovered/Resolved]
  - Hypoaesthesia [Recovered/Resolved]
  - Intentional product use issue [Unknown]
  - Diarrhoea [Recovered/Resolved]
  - Feeling abnormal [Unknown]
